FAERS Safety Report 10234297 (Version 1)
Quarter: 2014Q2

REPORT INFORMATION
  Report Type: Spontaneous
  Country: US (occurrence: US)
  Receive Date: 20140612
  Receipt Date: 20140612
  Transmission Date: 20141212
  Serious: Yes (Other)
  Sender: FDA-Public Use
  Company Number: US-ELI_LILLY_AND_COMPANY-US201406000382

PATIENT
  Sex: Male

DRUGS (3)
  1. HUMALOG LISPRO [Suspect]
     Indication: DIABETES MELLITUS
     Dosage: 25 U, BID
     Route: 065
  2. AMLODIPINE [Concomitant]
  3. TENORMIN [Concomitant]

REACTIONS (1)
  - Visual acuity reduced [Not Recovered/Not Resolved]
